FAERS Safety Report 5605461-8 (Version None)
Quarter: 2008Q1

REPORT INFORMATION
  Report Type: 
  Country: None (occurrence: None)
  Receive Date: 20080124
  Receipt Date: 20080121
  Transmission Date: 20080703
  Serious: Yes (Life-Threatening, Disabling)
  Sender: FDA-Public Use
  Company Number: 2008S1000016

PATIENT
  Age: 18 Day
  Sex: Female
  Weight: 1.1 kg

DRUGS (4)
  1. NITRIC OXIDE [Suspect]
     Indication: LUNG DISORDER
     Dosage: 5 PPM;CONT;INH
     Route: 055
     Dates: start: 20071206
  2. NITRIC OXIDE [Suspect]
     Indication: PROPHYLAXIS
     Dosage: 5 PPM;CONT;INH
     Route: 055
     Dates: start: 20071206
  3. NITRIC OXIDE [Suspect]
  4. NITRIC OXIDE [Suspect]

REACTIONS (1)
  - PATENT DUCTUS ARTERIOSUS [None]
